FAERS Safety Report 12592915 (Version 1)
Quarter: 2016Q3

REPORT INFORMATION
  Report Type: Spontaneous
  Country: US (occurrence: US)
  Receive Date: 20160726
  Receipt Date: 20160726
  Transmission Date: 20161109
  Serious: No
  Sender: FDA-Public Use
  Company Number: US-ABBVIE-15P-163-1504854-00

PATIENT
  Sex: Female
  Weight: 46.27 kg

DRUGS (2)
  1. LIPITOR [Suspect]
     Active Substance: ATORVASTATIN CALCIUM
     Indication: BLOOD CHOLESTEROL
     Dosage: 1 PILL
     Route: 048
  2. SYNTHROID [Suspect]
     Active Substance: LEVOTHYROXINE SODIUM
     Indication: BASEDOW^S DISEASE
     Route: 065

REACTIONS (10)
  - Anxiety [Unknown]
  - Blood cholesterol increased [Unknown]
  - Chromaturia [Unknown]
  - Blood urine present [Unknown]
  - Thyroid function test abnormal [Unknown]
  - Feeling abnormal [Unknown]
  - Memory impairment [Unknown]
  - Weight decreased [Unknown]
  - Night sweats [Unknown]
  - Stress [Unknown]
